FAERS Safety Report 9075096 (Version 1)
Quarter: 2013Q1

REPORT INFORMATION
  Report Type: Spontaneous
  Country: CA (occurrence: CA)
  Receive Date: 20130129
  Receipt Date: 20130129
  Transmission Date: 20140127
  Serious: Yes (Other)
  Sender: FDA-Public Use
  Company Number: CA-AMGEN-CANSP2013005010

PATIENT
  Age: 62 Year
  Sex: Male

DRUGS (9)
  1. ARANESP [Suspect]
     Indication: RENAL FAILURE CHRONIC
     Dosage: UNK
     Dates: start: 20121120
  2. REPLAVITE                          /00058902/ [Concomitant]
  3. DOCUSATE SODIUM [Concomitant]
  4. OLMETEC [Concomitant]
  5. ASPIRIN [Concomitant]
  6. METOPROLOL [Concomitant]
  7. FUROSEMIDE [Concomitant]
  8. ADALAT [Concomitant]
  9. SENOKOT                            /00142201/ [Concomitant]

REACTIONS (10)
  - Blood creatinine abnormal [Unknown]
  - Vomiting [Unknown]
  - Nausea [Unknown]
  - Blood glucose abnormal [Unknown]
  - Protein total decreased [Unknown]
  - Chest pain [Unknown]
  - Swelling [Unknown]
  - Wheezing [Unknown]
  - Eructation [Unknown]
  - Cough [Unknown]
